FAERS Safety Report 18724682 (Version 1)
Quarter: 2021Q1

REPORT INFORMATION
  Report Type: Spontaneous
  Country: US (occurrence: US)
  Receive Date: 20210111
  Receipt Date: 20210111
  Transmission Date: 20210419
  Serious: Yes (Hospitalization, Other)
  Sender: FDA-Public Use
  Company Number: US-PERRIGO-20US018665

PATIENT
  Age: 46 Year
  Sex: Female
  Weight: 82.99 kg

DRUGS (6)
  1. ALBUTEROL SULFATE. [Suspect]
     Active Substance: ALBUTEROL SULFATE
     Indication: ASTHMA
     Dosage: 180 MCG, BID; ADDITIONAL 180 MCG PRN
     Route: 055
     Dates: start: 20201116, end: 20201219
  2. FLOVENT [Concomitant]
     Active Substance: FLUTICASONE PROPIONATE
     Indication: ASTHMA
     Dosage: UNK, UNK
     Route: 065
     Dates: start: 202001
  3. ABILIFY [Concomitant]
     Active Substance: ARIPIPRAZOLE
     Indication: ANXIETY
     Dosage: UNK, UNK
     Route: 065
     Dates: start: 2015
  4. TUMS [Concomitant]
     Active Substance: CALCIUM CARBONATE
     Indication: GASTROOESOPHAGEAL REFLUX DISEASE
     Dosage: UNK, PRN
     Route: 065
  5. LAMICTAL [Concomitant]
     Active Substance: LAMOTRIGINE
     Indication: PSYCHOGENIC SEIZURE
     Dosage: UNK, UNK
     Route: 065
     Dates: start: 2015
  6. PREDNISONE. [Concomitant]
     Active Substance: PREDNISONE
     Indication: ASTHMA
     Dosage: Q3 MONTHS, PRN
     Route: 065

REACTIONS (4)
  - Underdose [Recovered/Resolved]
  - Device delivery system issue [Recovered/Resolved]
  - Drug ineffective [Unknown]
  - Asthma [Recovered/Resolved]

NARRATIVE: CASE EVENT DATE: 20201116
